FAERS Safety Report 10588080 (Version 1)
Quarter: 2014Q4

REPORT INFORMATION
  Report Type: Spontaneous
  Country: US (occurrence: US)
  Receive Date: 20141117
  Receipt Date: 20141117
  Transmission Date: 20150529
  Serious: No
  Sender: FDA-Public Use
  Company Number: US-TEVA-522224USA

PATIENT
  Age: 69 Year
  Sex: Female

DRUGS (1)
  1. COPAXONE [Suspect]
     Active Substance: GLATIRAMER ACETATE
     Indication: MULTIPLE SCLEROSIS
     Dates: start: 20070728

REACTIONS (5)
  - Tooth loss [Recovered/Resolved]
  - Blood pressure increased [Unknown]
  - Facial bones fracture [Unknown]
  - Fall [Unknown]
  - Face injury [Unknown]

NARRATIVE: CASE EVENT DATE: 20131202
